FAERS Safety Report 13424240 (Version 1)
Quarter: 2017Q2

REPORT INFORMATION
  Report Type: Spontaneous
  Country: None (occurrence: US)
  Receive Date: 20170410
  Receipt Date: 20170410
  Transmission Date: 20170830
  Serious: No
  Sender: FDA-Public Use
  Company Number: US-MEDAC PHARMA, INC.-1065233

PATIENT
  Age: 68 Year
  Sex: Female
  Weight: 86.82 kg

DRUGS (5)
  1. SYMBICORT [Concomitant]
     Active Substance: BUDESONIDE\FORMOTEROL FUMARATE DIHYDRATE
  2. PROPAFENONE. [Concomitant]
     Active Substance: PROPAFENONE
  3. RASUVO [Suspect]
     Active Substance: METHOTREXATE SODIUM
     Indication: RHEUMATOID ARTHRITIS
     Dates: start: 20170222
  4. DIGOXIN. [Concomitant]
     Active Substance: DIGOXIN
  5. ZERATOL [Concomitant]

REACTIONS (4)
  - Exposure via skin contact [Recovered/Resolved]
  - Device issue [Recovered/Resolved]
  - Injection site haemorrhage [Unknown]
  - Accidental exposure to product [Recovered/Resolved]

NARRATIVE: CASE EVENT DATE: 20170322
